FAERS Safety Report 13083269 (Version 3)
Quarter: 2018Q1

REPORT INFORMATION
  Report Type: Spontaneous
  Country: US (occurrence: US)
  Receive Date: 20170104
  Receipt Date: 20180320
  Transmission Date: 20180508
  Serious: Yes (Hospitalization, Other)
  Sender: FDA-Public Use
  Company Number: US-ASTRAZENECA-2016SF35596

PATIENT
  Age: 84 Year
  Sex: Female
  Weight: 49.9 kg

DRUGS (10)
  1. ASPIRIN. [Concomitant]
     Active Substance: ASPIRIN
     Indication: ADJUVANT THERAPY
     Route: 048
     Dates: start: 20160526
  2. OTC CALCIUM WITH VITAMIN D [Concomitant]
     Indication: BONE DISORDER
     Dosage: DAILY
     Route: 048
  3. VESICARE [Concomitant]
     Active Substance: SOLIFENACIN SUCCINATE
     Indication: HYPERTONIC BLADDER
     Route: 048
  4. BRILINTA [Suspect]
     Active Substance: TICAGRELOR
     Indication: STENT PLACEMENT
     Route: 048
     Dates: start: 201608
  5. BRILINTA [Suspect]
     Active Substance: TICAGRELOR
     Indication: CATHETERISATION CARDIAC
     Route: 048
     Dates: start: 201608
  6. ASPIRIN. [Concomitant]
     Active Substance: ASPIRIN
     Indication: CARDIAC DISORDER
     Route: 048
     Dates: start: 20160526
  7. OLMESARTAN MEDOXOMIL. [Concomitant]
     Active Substance: OLMESARTAN MEDOXOMIL
     Indication: BLOOD PRESSURE ABNORMAL
     Route: 048
     Dates: start: 2016
  8. BRILINTA [Suspect]
     Active Substance: TICAGRELOR
     Indication: STENT PLACEMENT
     Route: 048
     Dates: start: 20150526, end: 201608
  9. BRILINTA [Suspect]
     Active Substance: TICAGRELOR
     Indication: CATHETERISATION CARDIAC
     Route: 048
     Dates: start: 20150526, end: 201608
  10. ACTONEL [Concomitant]
     Active Substance: RISEDRONATE SODIUM
     Indication: BONE DISORDER
     Route: 048

REACTIONS (22)
  - Hypophagia [Recovered/Resolved]
  - Peripheral swelling [Recovered/Resolved]
  - Arthritis [Unknown]
  - Wrist fracture [Recovering/Resolving]
  - Decreased appetite [Unknown]
  - Skin discolouration [Not Recovered/Not Resolved]
  - Post procedural complication [Unknown]
  - Hand fracture [Recovering/Resolving]
  - Weight decreased [Recovered/Resolved]
  - Eye disorder [Not Recovered/Not Resolved]
  - Joint swelling [Recovering/Resolving]
  - Off label use [Unknown]
  - Fall [Recovering/Resolving]
  - Post procedural haemorrhage [Unknown]
  - Injury corneal [Recovered/Resolved]
  - Contusion [Not Recovered/Not Resolved]
  - Finger deformity [Not Recovered/Not Resolved]
  - Hypertension [Unknown]
  - Product use in unapproved indication [Unknown]
  - Product use issue [Unknown]
  - Limb injury [Recovering/Resolving]
  - Stress [Unknown]

NARRATIVE: CASE EVENT DATE: 2015
